FAERS Safety Report 4952142-X (Version None)
Quarter: 2006Q1

REPORT INFORMATION
  Report Type: 
  Country: None (occurrence: None)
  Receive Date: 20060320
  Receipt Date: 20060315
  Transmission Date: 20060701
  Serious: Yes (Hospitalization)
  Sender: FDA-Public Use
  Company Number: 2005-09-1456

PATIENT
  Age: 68 Year
  Sex: Female

DRUGS (1)
  1. INTRON A [Suspect]
     Indication: MALIGNANT MELANOMA
     Dosage: 3 MIU QWK SUBCUTANEOUS
     Route: 058
     Dates: start: 20040801

REACTIONS (1)
  - BASEDOW'S DISEASE [None]
